FAERS Safety Report 8131941-X (Version None)
Quarter: 2012Q1

REPORT INFORMATION
  Report Type: 
  Country: None (occurrence: None)
  Receive Date: 20120208
  Receipt Date: 20120130
  Transmission Date: 20120608
  Serious: Yes (Other)
  Sender: FDA-Public Use
  Company Number: AUR-APL-2012-00790

PATIENT
  Age: 67 Year
  Sex: Male

DRUGS (3)
  1. GLIPIZIDE [Suspect]
     Indication: DIABETES MELLITUS
     Dosage: (2 IN 1 D)
  2. METFORMIN HCL [Suspect]
     Indication: PRODUCT USED FOR UNKNOWN INDICATION
     Dosage: (2 IN 1 D)
  3. LANTUS [Suspect]
     Indication: DIABETES MELLITUS
     Dosage: (15 IU, 1 D), SUBCUTANEOUS
     Route: 058
     Dates: start: 20111101, end: 20111101

REACTIONS (3)
  - DIABETES MELLITUS INADEQUATE CONTROL [None]
  - WRONG TECHNIQUE IN DRUG USAGE PROCESS [None]
  - INJECTION SITE HAEMATOMA [None]
